FAERS Safety Report 21177619 (Version 2)
Quarter: 2022Q3

REPORT INFORMATION
  Report Type: Spontaneous
  Country: TR (occurrence: TR)
  Receive Date: 20220805
  Receipt Date: 20220819
  Transmission Date: 20221027
  Serious: Yes (Death, Hospitalization)
  Sender: FDA-Public Use
  Company Number: TR-TEVA-2022-TR-2060123

PATIENT
  Age: 1 Day
  Sex: Male
  Weight: 2.46 kg

DRUGS (13)
  1. SILDENAFIL [Suspect]
     Active Substance: SILDENAFIL
     Indication: Pulmonary hypertension
     Route: 065
  2. PORACTANT ALFA [Suspect]
     Active Substance: PORACTANT ALFA
     Indication: Neonatal respiratory distress syndrome
     Dosage: TOTAL FIVE DOSES ADMINISTERED BY INTUBATION-SURFACTANT-EXTUBATION METHOD
     Route: 065
  3. DOPAMINE [Suspect]
     Active Substance: DOPAMINE HYDROCHLORIDE
     Indication: Pulmonary hypertension
     Route: 065
  4. DOBUTAMINE [Suspect]
     Active Substance: DOBUTAMINE HYDROCHLORIDE
     Indication: Pulmonary hypertension
     Route: 065
  5. LOPINAVIR-RITONAVIR [Suspect]
     Active Substance: LOPINAVIR\RITONAVIR
     Indication: COVID-19 pneumonia
     Route: 065
  6. AMPICILLIN [Concomitant]
     Active Substance: AMPICILLIN
     Indication: Congenital pneumonia
     Route: 065
  7. GENTAMICIN [Concomitant]
     Active Substance: GENTAMICIN
     Indication: Congenital pneumonia
     Route: 065
  8. CEFOTAXIME [Concomitant]
     Active Substance: CEFOTAXIME SODIUM
     Indication: Congenital pneumonia
     Route: 065
  9. AZITHROMYCIN [Concomitant]
     Active Substance: AZITHROMYCIN
     Indication: Congenital pneumonia
     Route: 065
  10. VANCOMYCIN [Concomitant]
     Active Substance: VANCOMYCIN
     Indication: Sepsis neonatal
     Route: 065
  11. MEROPENEM [Concomitant]
     Active Substance: MEROPENEM
     Indication: Sepsis neonatal
     Route: 065
  12. IMMUNE GLOBULIN NOS [Concomitant]
     Active Substance: IMMUNE GLOBULIN NOS
     Indication: Thrombocytopenia neonatal
     Route: 042
  13. NITRIC OXIDE [Concomitant]
     Active Substance: NITRIC OXIDE
     Indication: Neonatal respiratory distress syndrome
     Route: 055

REACTIONS (3)
  - Drug ineffective [Fatal]
  - Drug ineffective for unapproved indication [Fatal]
  - Off label use [Fatal]
